FAERS Safety Report 15958743 (Version 1)
Quarter: 2019Q1

REPORT INFORMATION
  Report Type: Report from Study
  Country: None (occurrence: CA)
  Receive Date: 20190213
  Receipt Date: 20190213
  Transmission Date: 20190417
  Serious: Yes (Other)
  Sender: FDA-Public Use
  Company Number: CA-ABBVIE-18K-028-2490359-00

PATIENT
  Sex: Female

DRUGS (1)
  1. HUMIRA [Suspect]
     Active Substance: ADALIMUMAB
     Indication: CROHN^S DISEASE
     Route: 058
     Dates: start: 20170203

REACTIONS (4)
  - Fistula [Not Recovered/Not Resolved]
  - Fistula discharge [Unknown]
  - Bladder perforation [Not Recovered/Not Resolved]
  - Vesical fistula [Not Recovered/Not Resolved]

NARRATIVE: CASE EVENT DATE: 2018
